FAERS Safety Report 6861523-9 (Version None)
Quarter: 2010Q3

REPORT INFORMATION
  Report Type: 
  Country: None (occurrence: None)
  Receive Date: 20100720
  Receipt Date: 20100712
  Transmission Date: 20110219
  Serious: Yes (Other)
  Sender: FDA-Public Use
  Company Number: US-BRISTOL-MYERS SQUIBB COMPANY-15195092

PATIENT
  Age: 10 Year
  Sex: Male

DRUGS (5)
  1. CYCLOPHOSPHAMIDE [Suspect]
     Dosage: ON DAYS 1 TO 5, PRIOR TO TRANSPLANTATION AT A DOSAGE OF 50MG/KG
  2. CYCLOSPORINE [Suspect]
     Indication: PROPHYLAXIS
  3. PREDNISONE [Suspect]
     Indication: IMMUNOSUPPRESSANT DRUG THERAPY
  4. BUSULFAN [Suspect]
     Dosage: ON DAYS 6 TO 9, PRIOR TO TRANSPLANTATION
     Route: 042
  5. MESNA [Concomitant]
     Indication: PROPHYLAXIS

REACTIONS (2)
  - GRAFT VERSUS HOST DISEASE [None]
  - HERPES ZOSTER [None]
